FAERS Safety Report 4758192-0 (Version None)
Quarter: 2005Q3

REPORT INFORMATION
  Report Type: 
  Country: None (occurrence: None)
  Receive Date: 20050826
  Receipt Date: 20050623
  Transmission Date: 20060218
  Serious: No
  Sender: FDA-Public Use
  Company Number: WAES 0506USA03415

PATIENT
  Sex: Male

DRUGS (3)
  1. ZETIA [Suspect]
     Indication: BLOOD CHOLESTEROL INCREASED
     Dosage: 10 MG/DAILY/PO
     Route: 048
     Dates: start: 20050201
  2. ZOCOR [Concomitant]
  3. NIACIN [Concomitant]

REACTIONS (3)
  - FEELING ABNORMAL [None]
  - NAUSEA [None]
  - RESTLESSNESS [None]
